FAERS Safety Report 7164716-9 (Version None)
Quarter: 2010Q4

REPORT INFORMATION
  Report Type: 
  Country: None (occurrence: None)
  Receive Date: 20101215
  Receipt Date: 20101206
  Transmission Date: 20110411
  Serious: Yes (Hospitalization)
  Sender: FDA-Public Use
  Company Number: US-SANOFI-AVENTIS-2010SA074161

PATIENT
  Age: 91 Year
  Sex: Female

DRUGS (1)
  1. LANTUS [Suspect]
     Indication: DIABETES MELLITUS
     Dosage: IN THE EVENING DOSE:15 UNIT(S)
     Route: 058
     Dates: start: 20070101

REACTIONS (4)
  - BLOOD GLUCOSE DECREASED [None]
  - CARDIAC DISORDER [None]
  - HYPERTENSION [None]
  - VISUAL IMPAIRMENT [None]
